FAERS Safety Report 8168276-5 (Version None)
Quarter: 2012Q1

REPORT INFORMATION
  Report Type: 
  Country: None (occurrence: None)
  Receive Date: 20120227
  Receipt Date: 20120225
  Transmission Date: 20120608
  Serious: No
  Sender: FDA-Public Use
  Company Number: US-PFIZER INC-2012050066

PATIENT
  Age: 59 Year
  Sex: Female
  Weight: 81.633 kg

DRUGS (8)
  1. ADVIL COLD AND SINUS [Suspect]
     Indication: INFLUENZA
     Dosage: 200/30 MG, AS NEEDED
     Route: 065
     Dates: start: 20120224
  2. DEXTROMETHORPHAN HYDROBROMIDE/GUAIFENESIN [Suspect]
     Indication: NASOPHARYNGITIS
     Dosage: UNK, EVERY 4 HOURS
     Route: 065
     Dates: start: 20120222, end: 20120224
  3. METOPROLOL SUCCINATE [Concomitant]
     Dosage: 50 MG, DAILY
     Route: 065
     Dates: end: 20120222
  4. SOMA [Concomitant]
     Dosage: 350 MG, DAILY
     Route: 065
     Dates: end: 20120222
  5. ACETAMINOPHEN AND HYDROCODONE BITARTRATE [Concomitant]
     Dosage: 10/225 MG, DAILY
     Route: 065
     Dates: end: 20120222
  6. PREDNISONE [Suspect]
     Indication: ASTHMA
     Dosage: 25 MG, DAILY
     Route: 065
     Dates: start: 20120224
  7. PREDNISONE [Suspect]
     Indication: CHEST DISCOMFORT
  8. LISINOPRIL [Concomitant]
     Indication: HYPERTENSION
     Dosage: 10 MG, DAILY
     Route: 065
     Dates: end: 20120222

REACTIONS (3)
  - URTICARIA [None]
  - PRURITUS [None]
  - RASH [None]
